FAERS Safety Report 9070884 (Version 6)
Quarter: 2013Q2

REPORT INFORMATION
  Report Type: Spontaneous
  Country: FR (occurrence: FR)
  Receive Date: 20130129
  Receipt Date: 20130619
  Transmission Date: 20140414
  Serious: Yes (Hospitalization, Other)
  Sender: FDA-Public Use
  Company Number: PHHY2013FR008116

PATIENT
  Age: 54 Year
  Sex: Female
  Weight: 38 kg

DRUGS (10)
  1. CERTICAN [Suspect]
     Indication: PROPHYLAXIS AGAINST TRANSPLANT REJECTION
     Dosage: 7 MG DAILY
     Route: 048
     Dates: start: 20120924, end: 20130205
  2. PROGRAF [Concomitant]
     Dosage: 500 MG, TWICE DAILY
     Dates: start: 201203, end: 201209
  3. CORTANCYL [Concomitant]
     Dosage: UNK
  4. LEVOTHYROX [Concomitant]
     Dosage: UNK
  5. CELLCEPT [Concomitant]
     Dosage: UNK
  6. TAHOR [Concomitant]
     Dosage: UNK
  7. ALLOPURINOL [Concomitant]
     Dosage: UNK
  8. UVEDOSE [Concomitant]
     Dosage: UNK
  9. PREDNISONE [Concomitant]
     Dosage: 10 MG, UNK
  10. MYCOPHENOLATE MOFETIL [Concomitant]
     Dosage: 750 MG, UNK

REACTIONS (6)
  - Posterior reversible encephalopathy syndrome [Recovering/Resolving]
  - Headache [Not Recovered/Not Resolved]
  - Papilloedema [Not Recovered/Not Resolved]
  - Visual acuity reduced [Not Recovered/Not Resolved]
  - Convulsion [Recovered/Resolved]
  - Thrombotic thrombocytopenic purpura [Unknown]
